FAERS Safety Report 19102992 (Version 9)
Quarter: 2021Q4

REPORT INFORMATION
  Report Type: Report from Study
  Country: US (occurrence: US)
  Receive Date: 20210407
  Receipt Date: 20211021
  Transmission Date: 20220303
  Serious: Yes (Other)
  Sender: FDA-Public Use
  Company Number: US-GLAXOSMITHKLINE-US2021AMR001930

PATIENT
  Age: 61 Year
  Sex: Male

DRUGS (1)
  1. BELANTAMAB MAFODOTIN [Suspect]
     Active Substance: BELANTAMAB MAFODOTIN
     Indication: Plasma cell myeloma
     Dosage: UNK
     Dates: start: 20200901

REACTIONS (14)
  - Corneal cyst [Not Recovered/Not Resolved]
  - Keratopathy [Recovered/Resolved]
  - Vision blurred [Unknown]
  - Cataract operation [Unknown]
  - Visual acuity reduced [Not Recovered/Not Resolved]
  - Weight decreased [Unknown]
  - Visual impairment [Unknown]
  - Photophobia [Not Recovered/Not Resolved]
  - Dry eye [Not Recovered/Not Resolved]
  - Foreign body sensation in eyes [Not Recovered/Not Resolved]
  - Blood immunoglobulin A increased [Unknown]
  - Light chain analysis increased [Unknown]
  - Insomnia [Unknown]
  - Drug ineffective [Unknown]

NARRATIVE: CASE EVENT DATE: 20201016
